FAERS Safety Report 4367266-8 (Version None)
Quarter: 2004Q2

REPORT INFORMATION
  Report Type: 
  Country: None (occurrence: None)
  Receive Date: 20040524
  Receipt Date: 20040517
  Transmission Date: 20050107
  Serious: Yes (Other)
  Sender: FDA-Public Use
  Company Number: 2004213638US

PATIENT
  Sex: Female

DRUGS (5)
  1. PROVERA [Suspect]
     Indication: MENOPAUSAL SYMPTOMS
  2. PREMARIN [Suspect]
     Indication: MENOPAUSAL SYMPTOMS
  3. ESTRATEST [Suspect]
     Indication: MENOPAUSAL SYMPTOMS
  4. ESTRACE [Suspect]
     Indication: MENOPAUSAL SYMPTOMS
  5. TAMOXIFEN CITRATE [Concomitant]

REACTIONS (6)
  - ANXIETY [None]
  - BREAST CANCER FEMALE [None]
  - DEFORMITY [None]
  - INJURY [None]
  - MENTAL DISORDER [None]
  - PAIN [None]
